FAERS Safety Report 23547049 (Version 1)
Quarter: 2024Q1

REPORT INFORMATION
  Report Type: Spontaneous
  Country: DE (occurrence: DE)
  Receive Date: 20240221
  Receipt Date: 20240221
  Transmission Date: 20240409
  Serious: Yes (Other)
  Sender: FDA-Public Use
  Company Number: DE-CHEPLA-2024002239

PATIENT
  Age: 78 Year
  Sex: Male

DRUGS (1)
  1. HYDROXYUREA [Suspect]
     Active Substance: HYDROXYUREA

REACTIONS (1)
  - Optic atrophy [Unknown]

NARRATIVE: CASE EVENT DATE: 20240124
